FAERS Safety Report 10556630 (Version 1)
Quarter: 2014Q4

REPORT INFORMATION
  Report Type: Report from Study
  Country: US (occurrence: US)
  Receive Date: 20141031
  Receipt Date: 20141031
  Transmission Date: 20150529
  Serious: Yes (Hospitalization, Other)
  Sender: FDA-Public Use
  Company Number: PHEH2014US021700

PATIENT
  Sex: Female

DRUGS (1)
  1. CLOZARIL [Suspect]
     Active Substance: CLOZAPINE
     Indication: PRODUCT USED FOR UNKNOWN INDICATION
     Dosage: 25 MG, QD
     Route: 065
     Dates: start: 20141023

REACTIONS (4)
  - Gait disturbance [Unknown]
  - Bipolar disorder [Unknown]
  - Confusional state [Unknown]
  - Aggression [Unknown]

NARRATIVE: CASE EVENT DATE: 20141023
